FAERS Safety Report 20632438 (Version 2)
Quarter: 2022Q2

REPORT INFORMATION
  Report Type: Spontaneous
  Country: US (occurrence: None)
  Receive Date: 20220324
  Receipt Date: 20220422
  Transmission Date: 20220721
  Serious: No
  Sender: FDA-Public Use
  Company Number: 2022A109936

PATIENT
  Sex: Male

DRUGS (2)
  1. PULMICORT FLEXHALER [Suspect]
     Active Substance: BUDESONIDE
     Indication: Asthma
     Dosage: 4 INHALATIONS OF PULMICORT A DAY, THEN WENT DOWN TO 3 INHALATIONS A DAY, AND THEN WENT DOWN TO 2 ...
     Route: 055
  2. PULMICORT FLEXHALER [Suspect]
     Active Substance: BUDESONIDE
     Indication: Asthma
     Dosage: 180MCG 120 DOSES AND HE INHALES 1 PUFF AT NIGHT180UG/INHAL AT NIGHT
     Route: 055

REACTIONS (3)
  - Eye disorder [Not Recovered/Not Resolved]
  - Device use issue [Recovered/Resolved]
  - Device issue [Unknown]
